FAERS Safety Report 18445913 (Version 2)
Quarter: 2020Q4

REPORT INFORMATION
  Report Type: Spontaneous
  Country: TR (occurrence: TR)
  Receive Date: 20201030
  Receipt Date: 20201031
  Transmission Date: 20210114
  Serious: Yes (Death, Other)
  Sender: FDA-Public Use
  Company Number: TR-ABBVIE-20K-161-3625884-00

PATIENT
  Age: 72 Year
  Sex: Female

DRUGS (3)
  1. MESALAMINE. [Concomitant]
     Active Substance: MESALAMINE
     Indication: COLITIS ULCERATIVE
     Dosage: 3X2
     Route: 048
     Dates: start: 2013
  2. HUMIRA [Suspect]
     Active Substance: ADALIMUMAB
     Indication: COLITIS ULCERATIVE
     Route: 058
     Dates: start: 202005
  3. AZATHIOPRINE. [Concomitant]
     Active Substance: AZATHIOPRINE
     Indication: COLITIS ULCERATIVE
     Dosage: 3X1
     Route: 048
     Dates: start: 2014

REACTIONS (4)
  - Candida infection [Unknown]
  - Sepsis [Fatal]
  - Tachycardia [Fatal]
  - Tuberculosis [Fatal]

NARRATIVE: CASE EVENT DATE: 202010
